FAERS Safety Report 6135459-5 (Version None)
Quarter: 2009Q1

REPORT INFORMATION
  Report Type: 
  Country: None (occurrence: None)
  Receive Date: 20090327
  Receipt Date: 20090319
  Transmission Date: 20090719
  Serious: Yes (Congenital Anomaly)
  Sender: FDA-Public Use
  Company Number: A0748052A

PATIENT
  Sex: Female
  Weight: 3.4 kg

DRUGS (7)
  1. PAXIL [Suspect]
     Dosage: 37.5MG PER DAY
     Dates: start: 20021001, end: 20040101
  2. PAXIL CR [Suspect]
     Dosage: 37.5MG PER DAY
     Dates: start: 20020101, end: 20040101
  3. INSULIN [Concomitant]
     Indication: GESTATIONAL DIABETES
     Dates: start: 20021101, end: 20030701
  4. XANAX [Concomitant]
     Indication: ANXIETY
     Dosage: 10MG AS REQUIRED
     Dates: start: 20010101, end: 20020101
  5. ALBUTEROL [Concomitant]
     Indication: ASTHMA
     Dates: start: 19940101
  6. VITAMIN TAB [Concomitant]
  7. TYLENOL [Concomitant]

REACTIONS (2)
  - DRUG EXPOSURE DURING PREGNANCY [None]
  - VENTRICULAR SEPTAL DEFECT [None]
